FAERS Safety Report 11321994 (Version 1)
Quarter: 2015Q3

REPORT INFORMATION
  Report Type: Spontaneous
  Country: BR (occurrence: BR)
  Receive Date: 20150729
  Receipt Date: 20150729
  Transmission Date: 20151125
  Serious: Yes (Life-Threatening, Other)
  Sender: FDA-Public Use
  Company Number: BR-ABBVIE-15P-020-1433703-00

PATIENT
  Age: 8 Year
  Sex: Female

DRUGS (1)
  1. ULTANE [Suspect]
     Active Substance: SEVOFLURANE
     Indication: ANAESTHESIA
     Route: 065

REACTIONS (3)
  - Heart rate abnormal [Unknown]
  - Procedural complication [Unknown]
  - Unwanted awareness during anaesthesia [Unknown]

NARRATIVE: CASE EVENT DATE: 20150722
